FAERS Safety Report 8915732 (Version 2)
Quarter: 2013Q1

REPORT INFORMATION
  Report Type: Spontaneous
  Country: US (occurrence: US)
  Receive Date: 20121119
  Receipt Date: 20130319
  Transmission Date: 20140127
  Serious: Yes (Hospitalization)
  Sender: FDA-Public Use
  Company Number: US-INCYTE CORPORATION-2012IN002343

PATIENT
  Sex: Male
  Weight: 82.99 kg

DRUGS (2)
  1. JAKAFI [Suspect]
     Indication: BONE CANCER
     Dosage: 20 MG, BID
     Route: 048
     Dates: start: 20120417
  2. JAKAFI [Suspect]
     Dosage: NOT SPECIFIED
     Route: 048
     Dates: start: 2012

REACTIONS (1)
  - Hospitalisation [Unknown]
